FAERS Safety Report 23441207 (Version 2)
Quarter: 2024Q1

REPORT INFORMATION
  Report Type: Report from Study
  Country: IE (occurrence: IE)
  Receive Date: 20240125
  Receipt Date: 20240131
  Transmission Date: 20240410
  Serious: Yes (Hospitalization, Other)
  Sender: FDA-Public Use
  Company Number: IE-AstraZeneca-2023A295219

PATIENT
  Age: 80 Day
  Sex: Male

DRUGS (3)
  1. SYNAGIS [Suspect]
     Active Substance: PALIVIZUMAB
     Indication: Premature baby
     Route: 030
     Dates: start: 20231121
  2. SYNAGIS [Suspect]
     Active Substance: PALIVIZUMAB
     Dosage: 15.0MG/KG UNKNOWN ,AFTER 28 DAYS
     Route: 030
     Dates: start: 20231222
  3. IRON [Concomitant]
     Active Substance: IRON
     Indication: Product used for unknown indication
     Dosage: DAILY
     Route: 050

REACTIONS (4)
  - Hernia [Recovered/Resolved]
  - Inguinal hernia [Not Recovered/Not Resolved]
  - Restlessness [Not Recovered/Not Resolved]
  - Scrotal swelling [Not Recovered/Not Resolved]

NARRATIVE: CASE EVENT DATE: 20231222
